FAERS Safety Report 5471812-0 (Version None)
Quarter: 2007Q3

REPORT INFORMATION
  Report Type: 
  Country: None (occurrence: None)
  Receive Date: 20070928
  Receipt Date: 20070723
  Transmission Date: 20080115
  Serious: No
  Sender: FDA-Public Use
  Company Number: US-BRISTOL-MYERS SQUIBB COMPANY-13803879

PATIENT
  Age: 46 Year
  Sex: Male
  Weight: 136 kg

DRUGS (2)
  1. DEFINITY [Suspect]
     Route: 042
     Dates: start: 20070531, end: 20070531
  2. HYPERTENSION MEDICATION [Concomitant]

REACTIONS (3)
  - FLUSHING [None]
  - THROAT TIGHTNESS [None]
  - URTICARIA [None]
